FAERS Safety Report 8798784 (Version 1)
Quarter: 2012Q4

REPORT INFORMATION
  Report Type: Spontaneous
  Country: US (occurrence: None)
  Receive Date: 20120917
  Receipt Date: 20120917
  Transmission Date: 20130627
  Serious: No
  Sender: FDA-Public Use
  Company Number: None

PATIENT
  Age: 44 Year
  Sex: Female
  Weight: 56.7 kg

DRUGS (1)
  1. LISTERINE TOTAL CARE PLUS WHITENING [Suspect]
     Indication: SENSITIVITY OF GUMS
     Dosage: half a top daily po
     Route: 048
     Dates: start: 20120810, end: 20120914

REACTIONS (8)
  - Gingival swelling [None]
  - Gingival erosion [None]
  - Pharyngeal oedema [None]
  - Oral disorder [None]
  - Ageusia [None]
  - Gingival bleeding [None]
  - Vomiting [None]
  - Decreased appetite [None]
